FAERS Safety Report 10681969 (Version 1)
Quarter: 2014Q4

REPORT INFORMATION
  Report Type: Spontaneous
  Country: US (occurrence: None)
  Receive Date: 20141229
  Receipt Date: 20141229
  Transmission Date: 20150529
  Serious: Yes (Other)
  Sender: FDA-Public Use
  Company Number: None

PATIENT
  Age: 43 Year
  Sex: Female
  Weight: 65.77 kg

DRUGS (1)
  1. MONISTAT 3 [Suspect]
     Active Substance: MICONAZOLE NITRATE
     Indication: FUNGAL INFECTION
     Route: 067
     Dates: start: 20141225, end: 20141226

REACTIONS (3)
  - Application site pain [None]
  - Chemical burn of skin [None]
  - Application site swelling [None]

NARRATIVE: CASE EVENT DATE: 20141223
